FAERS Safety Report 4974437-6 (Version None)
Quarter: 2006Q2

REPORT INFORMATION
  Report Type: 
  Country: None (occurrence: None)
  Receive Date: 20060417
  Receipt Date: 20040901
  Transmission Date: 20061013
  Serious: Yes (Other)
  Sender: FDA-Public Use
  Company Number: DE-BRISTOL-MYERS SQUIBB COMPANY-13341847

PATIENT
  Sex: Male
  Weight: 74 kg

DRUGS (8)
  1. VIDEX [Suspect]
     Indication: HIV INFECTION
     Dosage: 14-JUL-2003 TO 21-JUL-2003, RESTARTED 21-JUL-2003 CONTINUED FOR ONLY 2 WEEKS
     Dates: start: 20030714, end: 20030801
  2. SUSTIVA [Suspect]
     Indication: HIV INFECTION
     Dosage: 14-JUL-2003 TO 21-JUL-2003, RESTARTED 08-AUG-2003
     Dates: start: 20030714
  3. TENOFOVIR [Suspect]
     Indication: HIV INFECTION
     Dosage: 14-JUL-2003 TO 21-JUL-2003, RESTARTED 21-JUL-2003 CONTINUED FOR ONLY 2 WEEKS
     Dates: start: 20030714, end: 20030801
  4. NEVIRAPINE [Suspect]
     Indication: HIV INFECTION
     Dates: start: 20030721, end: 20030801
  5. LOPINAVIR [Concomitant]
     Indication: HIV INFECTION
     Dates: start: 20030601, end: 20030701
  6. RITONAVIR [Concomitant]
     Indication: HIV INFECTION
     Dates: start: 20030601, end: 20030701
  7. LAMIVUDINE [Concomitant]
     Indication: HIV INFECTION
     Dates: start: 20030601, end: 20030701
  8. ZIDOVUDINE [Concomitant]
     Indication: HIV INFECTION
     Dates: start: 20030601, end: 20030701

REACTIONS (3)
  - DIARRHOEA [None]
  - RASH [None]
  - VERTIGO [None]
